FAERS Safety Report 15764014 (Version 1)
Quarter: 2018Q4

REPORT INFORMATION
  Report Type: Spontaneous
  Country: TR (occurrence: TR)
  Receive Date: 20181227
  Receipt Date: 20181227
  Transmission Date: 20190205
  Serious: Yes (Other)
  Sender: FDA-Public Use
  Company Number: TR-INCYTE CORPORATION-2018IN013190

PATIENT

DRUGS (1)
  1. JAKAVI [Suspect]
     Active Substance: RUXOLITINIB
     Indication: PRIMARY MYELOFIBROSIS
     Dosage: 20 MG, BID
     Route: 065

REACTIONS (7)
  - Night sweats [Unknown]
  - Weight decreased [Unknown]
  - Neck mass [Unknown]
  - Lymphadenopathy [Recovered/Resolved]
  - Pallor [Unknown]
  - Therapy non-responder [Unknown]
  - Lymph node tuberculosis [Unknown]
